FAERS Safety Report 5221273-1 (Version None)
Quarter: 2007Q1

REPORT INFORMATION
  Report Type: 
  Country: None (occurrence: None)
  Receive Date: 20070126
  Receipt Date: 20070117
  Transmission Date: 20070707
  Serious: Yes (Death, Hospitalization)
  Sender: FDA-Public Use
  Company Number: US-ROCHE-473806

PATIENT
  Age: 54 Year
  Sex: Female
  Weight: 64 kg

DRUGS (6)
  1. XELODA [Suspect]
     Indication: COLON CANCER
     Dosage: OTHER INDICATION: LIVER METASTASES; DIVIDED DOSES DAYS 1-14
     Route: 048
     Dates: start: 20061026, end: 20061115
  2. XELODA [Suspect]
     Dosage: DOSAGE REDUCED; DIVIDED DOSAGE; DAYS 1-14
     Route: 048
     Dates: start: 20061115, end: 20061125
  3. AVASTIN [Suspect]
     Indication: COLON CANCER
     Dosage: GIVEN ON DAY 1 FOR EVERY 21 DAY COURSE. FORM REPORTED AS PWDR+SOLVENT, INFUSION SOLN.
     Route: 042
     Dates: start: 20061026
  4. DARVOCET [Concomitant]
     Indication: PAIN
     Dosage: DOSAGE: AS NEEDED.
  5. PHENERGAN [Concomitant]
     Indication: VOMITING
     Dosage: DOSAGE: AS NEEDED.
  6. PROPOFOL [Concomitant]

REACTIONS (15)
  - ABDOMINAL PAIN [None]
  - ATELECTASIS [None]
  - CARDIAC ARREST [None]
  - DEEP VEIN THROMBOSIS [None]
  - DIARRHOEA [None]
  - DYSPNOEA [None]
  - HEPATIC NECROSIS [None]
  - HEPATIC STEATOSIS [None]
  - LACTIC ACIDOSIS [None]
  - LARGE INTESTINAL ULCER [None]
  - NAUSEA [None]
  - PERITONEAL EFFUSION [None]
  - SEPSIS [None]
  - TACHYCARDIA [None]
  - URINARY TRACT INFECTION [None]
